FAERS Safety Report 16451726 (Version 1)
Quarter: 2019Q2

REPORT INFORMATION
  Report Type: Spontaneous
  Country: US (occurrence: US)
  Receive Date: 20190619
  Receipt Date: 20190619
  Transmission Date: 20190711
  Serious: Yes (Death)
  Sender: FDA-Public Use
  Company Number: US-ROCHE-2339886

PATIENT
  Sex: Male
  Weight: 44.49 kg

DRUGS (3)
  1. PULMOZYME [Suspect]
     Active Substance: DORNASE ALFA
     Dosage: ONGOING: UNKNOWN
     Route: 055
     Dates: start: 20190506
  2. PULMOZYME [Suspect]
     Active Substance: DORNASE ALFA
     Indication: CYSTIC FIBROSIS
     Dosage: INHALE 2.5 ML VAI NEBULIZER
     Route: 055
     Dates: start: 20190507, end: 20190615
  3. MELATONIN [Concomitant]
     Active Substance: MELATONIN
     Dosage: ONGOING: UNKNOWN
     Route: 048
     Dates: start: 20190506

REACTIONS (1)
  - Death [Fatal]
